FAERS Safety Report 8425990-1 (Version None)
Quarter: 2012Q2

REPORT INFORMATION
  Report Type: 
  Country: None (occurrence: None)
  Receive Date: 20120601
  Receipt Date: 20120524
  Transmission Date: 20120825
  Serious: Yes (Hospitalization)
  Sender: FDA-Public Use
  Company Number: 2012SP022488

PATIENT
  Age: 45 Year
  Sex: Male

DRUGS (5)
  1. LITHIUM CARBONATE [Concomitant]
  2. PRISTIQ [Concomitant]
  3. ZYPREXA [Concomitant]
  4. SAPHRIS [Suspect]
     Indication: BIPOLAR I DISORDER
     Dosage: 10 MG; QD; SL, 15 MG; QD; SL
     Route: 060
     Dates: start: 20120224, end: 20120420
  5. SAPHRIS [Suspect]
     Indication: BIPOLAR I DISORDER
     Dosage: 10 MG; QD; SL, 15 MG; QD; SL
     Route: 060
     Dates: start: 20120213, end: 20120223

REACTIONS (7)
  - INCORRECT DOSE ADMINISTERED [None]
  - DRUG INEFFECTIVE [None]
  - PSYCHIATRIC SYMPTOM [None]
  - DELUSION [None]
  - MANIA [None]
  - GRANDIOSITY [None]
  - PRODUCT TASTE ABNORMAL [None]
